FAERS Safety Report 7292955-5 (Version None)
Quarter: 2011Q1

REPORT INFORMATION
  Report Type: 
  Country: None (occurrence: None)
  Receive Date: 20110215
  Receipt Date: 20110210
  Transmission Date: 20110831
  Serious: No
  Sender: FDA-Public Use
  Company Number: US-PFIZER INC-US-WYE-H16990510

PATIENT
  Sex: Female
  Weight: 68 kg

DRUGS (6)
  1. ZOLOFT [Suspect]
     Indication: DEPRESSION
     Dosage: 200.0 MG, 1X/DAY
     Route: 048
     Dates: start: 20050901
  2. AMBIEN [Concomitant]
  3. TRILAFON [Concomitant]
  4. ADDERALL 10 [Concomitant]
  5. PRISTIQ [Suspect]
     Indication: DEPRESSION
     Dosage: 50.0 MG, 1X/DAY
     Route: 048
     Dates: start: 20100803
  6. VICODIN [Concomitant]

REACTIONS (4)
  - HEADACHE [None]
  - DIZZINESS [None]
  - SEDATION [None]
  - FEELING ABNORMAL [None]
